FAERS Safety Report 8102107-4 (Version None)
Quarter: 2012Q1

REPORT INFORMATION
  Report Type: 
  Country: None (occurrence: None)
  Receive Date: 20120131
  Receipt Date: 20120125
  Transmission Date: 20120608
  Serious: Yes (Other)
  Sender: FDA-Public Use
  Company Number: GB-ELI_LILLY_AND_COMPANY-GB201201007366

PATIENT
  Age: 56 Year
  Sex: Female
  Weight: 87 kg

DRUGS (4)
  1. DAKTACORT [Concomitant]
     Dosage: UNK
     Dates: start: 20111017, end: 20111027
  2. IRBESARTAN [Concomitant]
     Dosage: UNK
     Dates: start: 20110921, end: 20120112
  3. BYETTA [Suspect]
     Dosage: UNK, UNKNOWN
     Dates: start: 20111019, end: 20120109
  4. METFORMIN HCL [Concomitant]
     Dosage: UNK
     Dates: start: 20110921, end: 20120112

REACTIONS (4)
  - AGITATION [None]
  - HALLUCINATION [None]
  - NAUSEA [None]
  - ANXIETY [None]
